FAERS Safety Report 8558794 (Version 4)
Quarter: 2013Q1

REPORT INFORMATION
  Report Type: Spontaneous
  Country: US (occurrence: None)
  Receive Date: 20120502
  Receipt Date: 20121120
  Transmission Date: 20140127
  Serious: Yes (Other)
  Sender: FDA-Public Use
  Company Number: 1204-214

PATIENT
  Sex: Male
  Weight: 99.79 kg

DRUGS (20)
  1. EYLEA [Suspect]
     Indication: AGE-RELATED MACULAR DEGENERATION
     Dosage: INTRAVITREAL
     Dates: start: 20120319, end: 20120319
  2. CALCIUM 600 (CALCIUM)(TABLET) [Concomitant]
  3. CYMBALTA [Concomitant]
  4. DIGOXIN [Concomitant]
  5. DONEPEZIL (DONEPEZIL) (TABLET) [Concomitant]
  6. FERROUS GLUCONATE (FERROUS GLUCONATE)(TABLET) [Concomitant]
  7. FISH OIL (FISH OIL)(CAPSULE) [Concomitant]
  8. FLAGYL [Concomitant]
  9. FLUOCINONIDE (FLUOCINONIDE) (OINTMENT) [Concomitant]
  10. FUROSEMIDE (FUROSEMIDE) (TABLET) [Concomitant]
  11. LEVOTHYROXINE (LEVOTHYROXINE) (TABLET) [Concomitant]
  12. METOLAZONE (METOLAZONE) (TABLET) [Concomitant]
  13. METOPROLOL TARTRATE [Concomitant]
  14. MSM (METHYLSULFONYLMETHANE) (CAPSULE) [Concomitant]
  15. MULTIVITAMINS (MULTIVITAMINS) (TABLET) [Concomitant]
  16. NEURONTIN [Concomitant]
  17. POTASSIUM CHLORIDE ER (POTASSIUM CHLORIDE) [Concomitant]
  18. PRAVASTATIN (PRAVASTATIN) (TABLET) [Concomitant]
  19. SEROQUEL [Concomitant]
  20. WARFARIN SODIUM [Concomitant]

REACTIONS (3)
  - Visual acuity reduced [None]
  - Visual impairment [None]
  - Pupils unequal [None]
